FAERS Safety Report 25172414 (Version 1)
Quarter: 2025Q2

REPORT INFORMATION
  Report Type: Spontaneous
  Country: US (occurrence: None)
  Receive Date: 20250408
  Receipt Date: 20250408
  Transmission Date: 20250716
  Serious: Yes (unspecified)
  Sender: FDA-CTU
  Company Number: None

PATIENT
  Age: 36 Year
  Sex: Female
  Weight: 84.37 kg

DRUGS (1)
  1. NEXPLANON [Suspect]
     Active Substance: ETONOGESTREL

REACTIONS (6)
  - Heavy menstrual bleeding [None]
  - Menstruation irregular [None]
  - Glucose tolerance impaired [None]
  - Alopecia [None]
  - Pain [None]
  - Skin disorder [None]

NARRATIVE: CASE EVENT DATE: 20221201
